FAERS Safety Report 4592867-1 (Version None)
Quarter: 2005Q1

REPORT INFORMATION
  Report Type: 
  Country: None (occurrence: None)
  Receive Date: 20050228
  Receipt Date: 20050217
  Transmission Date: 20050727
  Serious: Yes (Death, Hospitalization)
  Sender: FDA-Public Use
  Company Number: US-AMGEN-US116315

PATIENT
  Age: 88 Year
  Sex: Male

DRUGS (1)
  1. EPOGEN [Suspect]
     Indication: ANAEMIA
     Dates: start: 20021001, end: 20030801

REACTIONS (4)
  - ASTHENIA [None]
  - DEATH [None]
  - OEDEMA PERIPHERAL [None]
  - RASH GENERALISED [None]
